FAERS Safety Report 6193579-3 (Version None)
Quarter: 2009Q2

REPORT INFORMATION
  Report Type: 
  Country: None (occurrence: None)
  Receive Date: 20090514
  Receipt Date: 20090504
  Transmission Date: 20091009
  Serious: Yes (Death, Hospitalization)
  Sender: FDA-Public Use
  Company Number: FR-2009-0954

PATIENT
  Age: 64 Year
  Sex: Male

DRUGS (4)
  1. NAVELBINE [Suspect]
     Indication: NON-SMALL CELL LUNG CANCER
     Dosage: 40 MG IV
     Route: 042
     Dates: start: 20090220, end: 20090220
  2. CARBOPLATIN [Suspect]
     Indication: NON-SMALL CELL LUNG CANCER
     Dosage: 650 MG IV
     Route: 042
     Dates: start: 20090220, end: 20090220
  3. AUGMENTIN '125' [Concomitant]
  4. OFLOXACIN [Concomitant]

REACTIONS (6)
  - HAEMOPTYSIS [None]
  - HYPOXIA [None]
  - LUNG DISORDER [None]
  - PANCYTOPENIA [None]
  - REFUSAL OF TREATMENT BY PATIENT [None]
  - SEPTIC SHOCK [None]
